FAERS Safety Report 5431294-1 (Version None)
Quarter: 2007Q3

REPORT INFORMATION
  Report Type: 
  Country: None (occurrence: None)
  Receive Date: 20070828
  Receipt Date: 20070823
  Transmission Date: 20080115
  Serious: Yes (Disabling)
  Sender: FDA-Public Use
  Company Number: SPV1-2007-03851

PATIENT
  Age: 55 Year
  Sex: Female
  Weight: 47.6 kg

DRUGS (4)
  1. PENTASA [Suspect]
     Indication: CROHN'S DISEASE
     Dosage: SEE IMAGE
     Route: 048
     Dates: start: 20060101
  2. PENTASA [Suspect]
     Indication: CROHN'S DISEASE
     Dosage: SEE IMAGE
     Route: 048
     Dates: start: 20060109
  3. PREDNISONE TAB [Concomitant]
  4. NIACIN [Concomitant]

REACTIONS (4)
  - CROHN'S DISEASE [None]
  - DYSPEPSIA [None]
  - FLATULENCE [None]
  - SINUS HEADACHE [None]
